FAERS Safety Report 16382881 (Version 1)
Quarter: 2019Q2

REPORT INFORMATION
  Report Type: Spontaneous
  Country: US (occurrence: US)
  Receive Date: 20190508
  Receipt Date: 20190508
  Transmission Date: 20190711
  Serious: Yes (Death)
  Sender: FDA-Public Use
  Company Number: None

PATIENT
  Age: 56 Year
  Sex: Male

DRUGS (19)
  1. NEURONTIN [Concomitant]
     Active Substance: GABAPENTIN
  2. RANITIDINE. [Concomitant]
     Active Substance: RANITIDINE
  3. ATORVASTATIN [Concomitant]
     Active Substance: ATORVASTATIN
  4. ZOLPIDEM [Concomitant]
     Active Substance: ZOLPIDEM\ZOLPIDEM TARTRATE
  5. COLACE [Concomitant]
     Active Substance: DOCUSATE SODIUM
  6. VENLAFAXINE [Concomitant]
     Active Substance: VENLAFAXINE HYDROCHLORIDE
  7. LYRICA [Concomitant]
     Active Substance: PREGABALIN
  8. LIALDA [Concomitant]
     Active Substance: MESALAMINE
  9. FLUCONAZOLE. [Concomitant]
     Active Substance: FLUCONAZOLE
  10. OMEPRAZOLE. [Concomitant]
     Active Substance: OMEPRAZOLE
  11. OXYCOD [Concomitant]
  12. LYRICA [Concomitant]
     Active Substance: PREGABALIN
  13. PROLIA [Suspect]
     Active Substance: DENOSUMAB
     Indication: SENILE OSTEOPOROSIS
     Dosage: ?          OTHER FREQUENCY:EVERY 6 MONTHS;?
     Route: 058
     Dates: start: 20150528, end: 20190506
  14. AMBIEN [Concomitant]
     Active Substance: ZOLPIDEM TARTRATE
  15. GABAPENTIN. [Concomitant]
     Active Substance: GABAPENTIN
  16. SERTRALINE [Concomitant]
     Active Substance: SERTRALINE HYDROCHLORIDE
  17. DILAUDID [Concomitant]
     Active Substance: HYDROMORPHONE HYDROCHLORIDE
  18. FENTANYL. [Concomitant]
     Active Substance: FENTANYL
  19. HYDROXYZ [Concomitant]
     Active Substance: HYDROXYZINE HYDROCHLORIDE

REACTIONS (1)
  - Death [None]

NARRATIVE: CASE EVENT DATE: 20190506
